FAERS Safety Report 19481216 (Version 1)
Quarter: 2021Q3

REPORT INFORMATION
  Report Type: Spontaneous
  Country: US (occurrence: US)
  Receive Date: 20210701
  Receipt Date: 20210701
  Transmission Date: 20211014
  Serious: Yes (Death, Other)
  Sender: FDA-Public Use
  Company Number: US-PFIZER INC-2021770353

PATIENT
  Age: 28 Year
  Sex: Female

DRUGS (2)
  1. SILDENAFIL CITRATE. [Suspect]
     Active Substance: SILDENAFIL CITRATE
     Indication: PULMONARY ARTERIAL HYPERTENSION
     Dosage: UNK
  2. EPOPROSTENOL. [Suspect]
     Active Substance: EPOPROSTENOL
     Indication: INCREASED VENTRICULAR AFTERLOAD
     Dosage: UNK
     Route: 042

REACTIONS (3)
  - Drug ineffective [Fatal]
  - Myocarditis [Fatal]
  - Hypoxia [Fatal]
